FAERS Safety Report 6371155-7 (Version None)
Quarter: 2009Q3

REPORT INFORMATION
  Report Type: 
  Country: None (occurrence: None)
  Receive Date: 20090923
  Receipt Date: 20090909
  Transmission Date: 20100115
  Serious: Yes (Hospitalization)
  Sender: FDA-Public Use
  Company Number: US-MYLANLABS-2009S1015895

PATIENT
  Age: 54 Year
  Sex: Male

DRUGS (5)
  1. AZATHIOPRINE [Suspect]
     Indication: AUTOIMMUNE HEPATITIS
     Dosage: DOSAGE NOT STATED
     Dates: start: 20060101, end: 20070101
  2. PREDNISONE [Concomitant]
     Indication: AUTOIMMUNE HEPATITIS
     Dosage: DOSAGE NOT STATED
     Dates: start: 20060101, end: 20070101
  3. ALBUMIN-INTERFERON ALPHA-2B [Concomitant]
     Indication: HEPATITIS C
     Dosage: DOSAGE NOT STATED
     Dates: start: 20070101, end: 20070101
  4. PEGYLATED INTERFERON ALFA-2A [Concomitant]
     Indication: HEPATITIS C
     Dosage: DOSAGE NOT STATED
     Dates: start: 20070101
  5. RIBAVIRIN [Concomitant]
     Indication: HEPATITIS C
     Dosage: DOSAGE NOT STATED
     Dates: start: 20070101

REACTIONS (2)
  - LUNG INFECTION PSEUDOMONAL [None]
  - RESPIRATORY FAILURE [None]
